FAERS Safety Report 9001551 (Version 1)
Quarter: 2013Q1

REPORT INFORMATION
  Report Type: Spontaneous
  Country: FR (occurrence: FR)
  Receive Date: 20130107
  Receipt Date: 20130107
  Transmission Date: 20140127
  Serious: Yes (Death, Other)
  Sender: FDA-Public Use
  Company Number: FR-CELGENEUS-056-21880-13010240

PATIENT
  Age: 67 Year
  Sex: Female

DRUGS (14)
  1. REVLIMID [Suspect]
     Indication: PLASMA CELL MYELOMA
     Dosage: 15 MILLIGRAM
     Route: 048
     Dates: start: 201009, end: 201106
  2. MELPHALAN [Suspect]
     Indication: PLASMA CELL MYELOMA
     Route: 048
     Dates: start: 200701, end: 200805
  3. MELPHALAN [Suspect]
     Route: 048
     Dates: start: 200902, end: 201009
  4. MELPHALAN [Suspect]
     Dosage: 12 MILLIGRAM
     Route: 048
     Dates: start: 201106, end: 201202
  5. VELCADE [Suspect]
     Indication: PLASMA CELL MYELOMA
     Route: 041
     Dates: start: 200902, end: 200910
  6. VELCADE [Suspect]
     Route: 041
     Dates: start: 200911, end: 201007
  7. VELCADE [Suspect]
     Route: 041
     Dates: start: 201007, end: 201009
  8. VELCADE [Suspect]
     Dosage: DOSAGE REDUCED FROM 3TD COURSE: 1MG/M2 THEN 0.75MG/M2
     Route: 041
     Dates: start: 201106, end: 201202
  9. DEXAMETHASONE [Suspect]
     Indication: PLASMA CELL MYELOMA
     Route: 065
     Dates: start: 200902, end: 200910
  10. DEXAMETHASONE [Suspect]
     Dosage: 2.8571 MILLIGRAM
     Route: 065
     Dates: start: 201009, end: 201106
  11. CYCLOPHOSPHAMIDE [Suspect]
     Indication: PLASMA CELL MYELOMA
     Dates: start: 200906, end: 200906
  12. BENDAMUSTINE [Suspect]
     Indication: PLASMA CELL MYELOMA
     Route: 065
     Dates: start: 20120227
  13. PREDNISONE [Concomitant]
     Indication: PLASMA CELL MYELOMA
     Route: 065
     Dates: start: 200701, end: 200805
  14. PREDNISONE [Concomitant]
     Route: 065
     Dates: start: 201106

REACTIONS (1)
  - Acute leukaemia [Fatal]
